FAERS Safety Report 19830885 (Version 1)
Quarter: 2021Q3

REPORT INFORMATION
  Report Type: Spontaneous
  Country: US (occurrence: US)
  Receive Date: 20210915
  Receipt Date: 20210915
  Transmission Date: 20211014
  Serious: No
  Sender: FDA-Public Use
  Company Number: US-APOTEX-2021AP042432

PATIENT
  Age: 28 Year
  Sex: Male

DRUGS (4)
  1. URSODEOXYCHOLIC ACID [Concomitant]
     Active Substance: URSODIOL
     Indication: AUTOIMMUNE HEPATITIS
  2. BUTORPHANOL [Suspect]
     Active Substance: BUTORPHANOL
     Indication: CHOLESTATIC PRURITUS
     Dosage: 1 MG/DAY TO 3 MG/DAY (1 PUFF TO 3 PUFFS PER DAY)
     Route: 045
     Dates: start: 201707
  3. URSODEOXYCHOLIC ACID [Concomitant]
     Active Substance: URSODIOL
     Indication: CHOLANGITIS SCLEROSING
     Dosage: 1800 MILLIGRAM, QD
     Route: 065
  4. CHOLESTYRAMINE. [Concomitant]
     Active Substance: CHOLESTYRAMINE
     Indication: CHOLESTATIC PRURITUS
     Dosage: 4 GRAM, BID
     Route: 065

REACTIONS (2)
  - Nausea [Unknown]
  - Off label use [Unknown]

NARRATIVE: CASE EVENT DATE: 2017
